FAERS Safety Report 9815615 (Version 2)
Quarter: 2014Q1

REPORT INFORMATION
  Report Type: Spontaneous
  Country: AR (occurrence: AR)
  Receive Date: 20140114
  Receipt Date: 20140210
  Transmission Date: 20141002
  Serious: Yes (Hospitalization)
  Sender: FDA-Public Use
  Company Number: AR-SA-2014SA003868

PATIENT
  Age: 33 Year
  Sex: Male

DRUGS (4)
  1. FABRAZYME [Suspect]
     Indication: FABRY^S DISEASE
     Route: 042
     Dates: start: 201307
  2. DIAZEPAM [Concomitant]
  3. ENALAPRIL [Concomitant]
  4. CARBAMAZEPINE [Concomitant]

REACTIONS (3)
  - Device related infection [Recovered/Resolved]
  - Endocarditis bacterial [Recovering/Resolving]
  - Pyrexia [Recovering/Resolving]
